FAERS Safety Report 25937940 (Version 1)
Quarter: 2025Q4

REPORT INFORMATION
  Report Type: Spontaneous
  Country: TR (occurrence: TR)
  Receive Date: 20251018
  Receipt Date: 20251018
  Transmission Date: 20260118
  Serious: Yes (Life-Threatening, Hospitalization)
  Sender: ACCORD
  Company Number: TR-MLMSERVICE-20250929-PI661187-00128-1

PATIENT
  Age: 52 Year
  Sex: Female

DRUGS (9)
  1. ETOPOSIDE [Suspect]
     Active Substance: ETOPOSIDE
     Indication: Follicular dendritic cell sarcoma
     Dates: start: 2021
  2. PREDNISONE [Suspect]
     Active Substance: PREDNISONE
     Indication: Follicular dendritic cell sarcoma
     Dates: start: 2021
  3. CYCLOPHOSPHAMIDE [Suspect]
     Active Substance: CYCLOPHOSPHAMIDE
     Indication: Follicular dendritic cell sarcoma
     Dates: start: 2021
  4. DOXORUBICIN [Suspect]
     Active Substance: DOXORUBICIN
     Indication: Follicular dendritic cell sarcoma
     Dates: start: 2021
  5. VINCRISTINE [Suspect]
     Active Substance: VINCRISTINE
     Indication: Follicular dendritic cell sarcoma
     Dates: start: 2021
  6. VINCRISTINE [Suspect]
     Active Substance: VINCRISTINE
     Indication: Metastases to liver
     Dates: start: 2021
  7. ETOPOSIDE [Suspect]
     Active Substance: ETOPOSIDE
     Indication: Metastases to liver
     Dates: start: 2021
  8. CYCLOPHOSPHAMIDE [Suspect]
     Active Substance: CYCLOPHOSPHAMIDE
     Indication: Metastases to liver
     Dates: start: 2021
  9. DOXORUBICIN [Suspect]
     Active Substance: DOXORUBICIN
     Indication: Metastases to liver
     Dates: start: 2021

REACTIONS (5)
  - Fatigue [Unknown]
  - Hypotension [Unknown]
  - Haemoglobin decreased [Unknown]
  - Duodenal ulcer haemorrhage [Unknown]
  - Gastric haemorrhage [Unknown]

NARRATIVE: CASE EVENT DATE: 20210101
